FAERS Safety Report 6254182-X (Version None)
Quarter: 2009Q3

REPORT INFORMATION
  Report Type: 
  Country: None (occurrence: None)
  Receive Date: 20090702
  Receipt Date: 20070522
  Transmission Date: 20100115
  Serious: Yes (Hospitalization)
  Sender: FDA-Public Use
  Company Number: US-ASTRAZENECA-2006UW24516

PATIENT
  Age: 18880 Day
  Sex: Male
  Weight: 65.8 kg

DRUGS (21)
  1. SEROQUEL [Suspect]
     Indication: SCHIZOPHRENIA
     Route: 048
     Dates: start: 20000101
  2. SEROQUEL [Suspect]
     Indication: PARANOIA
     Route: 048
     Dates: start: 20000101
  3. SEROQUEL [Suspect]
     Indication: DEPRESSION
     Route: 048
     Dates: start: 20000101
  4. SEROQUEL [Suspect]
     Dosage: 100 - 600 MG EVERY DAY
     Route: 048
     Dates: start: 20031204
  5. SEROQUEL [Suspect]
     Dosage: 100 - 600 MG EVERY DAY
     Route: 048
     Dates: start: 20031204
  6. SEROQUEL [Suspect]
     Dosage: 100 - 600 MG EVERY DAY
     Route: 048
     Dates: start: 20031204
  7. RISPERDAL [Suspect]
     Dates: start: 20031112
  8. ZYPREXA [Suspect]
     Route: 048
     Dates: start: 20030908
  9. ABILIFY [Concomitant]
  10. HALDOL [Concomitant]
  11. NAVANE [Concomitant]
  12. THORAZINE [Concomitant]
  13. TRILAFON [Concomitant]
  14. LEXAPRO [Concomitant]
  15. CYMBALTA [Concomitant]
  16. ROBAXIN [Concomitant]
     Dates: start: 20070222
  17. KEFLEX [Concomitant]
     Dates: start: 20070206
  18. TRAZODONE HCL [Concomitant]
     Dates: start: 19991219
  19. REMERON [Concomitant]
     Dates: start: 20031204
  20. WELLBUTRIN SR [Concomitant]
     Dosage: 100 -  150 MG DAILY
     Route: 048
     Dates: start: 20031231
  21. DIOVAN [Concomitant]
     Route: 048
     Dates: start: 20070206

REACTIONS (8)
  - ABSCESS [None]
  - ABSCESS LIMB [None]
  - DIABETES MELLITUS [None]
  - DIABETES MELLITUS INADEQUATE CONTROL [None]
  - HYPERTENSION [None]
  - JOINT ABSCESS [None]
  - TYPE 1 DIABETES MELLITUS [None]
  - TYPE 2 DIABETES MELLITUS [None]
